FAERS Safety Report 8452791-0 (Version None)
Quarter: 2012Q2

REPORT INFORMATION
  Report Type: 
  Country: None (occurrence: None)
  Receive Date: 20120620
  Receipt Date: 20120426
  Transmission Date: 20120825
  Serious: No
  Sender: FDA-Public Use
  Company Number: US-VERTEX PHARMACEUTICALS INC.-AE-2012-006021

PATIENT
  Sex: Female
  Weight: 70.37 kg

DRUGS (4)
  1. PEGASYS [Concomitant]
     Route: 058
     Dates: start: 20120420
  2. LEXAPRO [Concomitant]
  3. RIBAVIRIN [Concomitant]
     Indication: HEPATITIS C
     Dates: start: 20120420
  4. INCIVEK [Suspect]
     Indication: HEPATITIS C
     Route: 048
     Dates: start: 20120420

REACTIONS (5)
  - DIARRHOEA [None]
  - LETHARGY [None]
  - RASH GENERALISED [None]
  - PRURITUS [None]
  - ANXIETY [None]
